FAERS Safety Report 6396712-3 (Version None)
Quarter: 2009Q4

REPORT INFORMATION
  Report Type: 
  Country: None (occurrence: None)
  Receive Date: 20091008
  Receipt Date: 20091008
  Transmission Date: 20100525
  Serious: No
  Sender: FDA-Public Use
  Company Number: None

PATIENT
  Sex: Female
  Weight: 13.7 kg

DRUGS (5)
  1. CYTARABINE [Suspect]
     Dosage: 50 MG
  2. DEXAMETHASONE 0.5MG TAB [Suspect]
     Dosage: 2 MG
  3. METHOTREXATE [Suspect]
     Dosage: 10 MG
  4. ONCASPAR [Suspect]
     Dosage: 1500 UNIT
  5. VINCRISTINE SULFATE [Suspect]
     Dosage: .9 MG

REACTIONS (5)
  - CARDIAC ARREST [None]
  - PULSE ABSENT [None]
  - RESPIRATION ABNORMAL [None]
  - RESPIRATORY ARREST [None]
  - VOMITING [None]
